FAERS Safety Report 7096588-5 (Version None)
Quarter: 2010Q4

REPORT INFORMATION
  Report Type: 
  Country: None (occurrence: None)
  Receive Date: 20101111
  Receipt Date: 20101104
  Transmission Date: 20110411
  Serious: Yes (Hospitalization)
  Sender: FDA-Public Use
  Company Number: B0683893A

PATIENT
  Age: 80 Year
  Sex: Male

DRUGS (1)
  1. LEUKERAN [Suspect]
     Dosage: 2MG PER DAY
     Route: 065
     Dates: start: 20091201, end: 20100203

REACTIONS (3)
  - ANAEMIA [None]
  - NEUTROPENIA [None]
  - RESPIRATORY TRACT INFECTION [None]
